FAERS Safety Report 6208616-7 (Version None)
Quarter: 2009Q2

REPORT INFORMATION
  Report Type: 
  Country: None (occurrence: None)
  Receive Date: 20090529
  Receipt Date: 20090527
  Transmission Date: 20091009
  Serious: Yes (Death)
  Sender: FDA-Public Use
  Company Number: BE-JNJFOC-20090506410

PATIENT
  Age: 41 Year
  Sex: Male

DRUGS (5)
  1. RISPERDAL CONSTA [Suspect]
     Route: 030
  2. RISPERDAL CONSTA [Suspect]
     Indication: DRUG USE FOR UNKNOWN INDICATION
     Route: 030
  3. AKINETON [Concomitant]
     Route: 065
  4. METADONE [Concomitant]
     Route: 065
  5. SEROQUEL [Concomitant]
     Route: 065

REACTIONS (2)
  - OVERDOSE [None]
  - PULMONARY EMBOLISM [None]
